FAERS Safety Report 8416388-0 (Version None)
Quarter: 2012Q2

REPORT INFORMATION
  Report Type: 
  Country: None (occurrence: None)
  Receive Date: 20120606
  Receipt Date: 20120531
  Transmission Date: 20120825
  Serious: Yes (Hospitalization, Other)
  Sender: FDA-Public Use
  Company Number: PHHO2011CA18137

PATIENT
  Sex: Female
  Weight: 56.7 kg

DRUGS (4)
  1. METOPROLOL TARTRATE [Concomitant]
     Indication: CORONARY ARTERY DISEASE
     Dosage: 50 MG, UNK
     Route: 048
     Dates: start: 20080101, end: 20111021
  2. TASIGNA [Suspect]
     Indication: CHRONIC MYELOID LEUKAEMIA
     Dosage: 300 MG, BID
     Route: 048
     Dates: start: 20110916, end: 20110926
  3. ASPIRIN [Concomitant]
     Indication: CORONARY ARTERY DISEASE
     Dosage: 81 MG, UNK
     Dates: start: 20080101, end: 20111021
  4. ACURETIC [Concomitant]
     Indication: HYPERTENSION
     Dosage: 20 MG/ 12.5 MG
     Route: 048
     Dates: start: 19900101, end: 20111021

REACTIONS (1)
  - MYOCARDIAL INFARCTION [None]
